FAERS Safety Report 5587148-3 (Version None)
Quarter: 2008Q1

REPORT INFORMATION
  Report Type: 
  Country: None (occurrence: None)
  Receive Date: 20080107
  Receipt Date: 20071005
  Transmission Date: 20080703
  Serious: Yes (Hospitalization)
  Sender: FDA-Public Use
  Company Number: PHNR2007AU01956

PATIENT
  Sex: Male

DRUGS (1)
  1. LAMISIL [Suspect]
     Indication: TINEA INFECTION
     Dosage: TOPICAL
     Route: 061

REACTIONS (1)
  - CELLULITIS [None]
